FAERS Safety Report 6221338-1 (Version None)
Quarter: 2009Q2

REPORT INFORMATION
  Report Type: 
  Country: None (occurrence: None)
  Receive Date: 20090610
  Receipt Date: 20090602
  Transmission Date: 20091009
  Serious: Yes (Hospitalization)
  Sender: FDA-Public Use
  Company Number: AU-CELGENEUS-008-20785-09051005

PATIENT
  Sex: Male

DRUGS (7)
  1. THALIDOMIDE [Suspect]
     Dosage: NOCTE
     Route: 048
     Dates: start: 20090427, end: 20090510
  2. THALIDOMIDE [Suspect]
     Dosage: NOCTE
     Route: 048
  3. AZACITIDINE INJECTABLE [Suspect]
     Route: 058
     Dates: start: 20090427, end: 20090503
  4. AZACITIDINE INJECTABLE [Suspect]
     Route: 058
  5. PANTOPRAZOLE SODIUM [Concomitant]
     Route: 048
  6. COLOXYL WITH SENNA [Concomitant]
     Indication: CONSTIPATION
     Route: 048
  7. SPIRONOLACTONE [Concomitant]
     Route: 048

REACTIONS (1)
  - RECTAL HAEMORRHAGE [None]
